FAERS Safety Report 8216346-5 (Version None)
Quarter: 2012Q1

REPORT INFORMATION
  Report Type: 
  Country: None (occurrence: None)
  Receive Date: 20120316
  Receipt Date: 20120315
  Transmission Date: 20120608
  Serious: Yes (Hospitalization)
  Sender: FDA-Public Use
  Company Number: US-BAYER-2012-026122

PATIENT
  Age: 50 Year
  Sex: Female

DRUGS (2)
  1. LEVETIRACETAM [Concomitant]
     Dosage: 1000 MG, UNK
  2. BETASERON [Suspect]
     Indication: MULTIPLE SCLEROSIS
     Dosage: 0.3 MG, QOD
     Route: 058
     Dates: start: 20110401

REACTIONS (2)
  - CONVULSION [None]
  - MALAISE [None]
